FAERS Safety Report 16052131 (Version 7)
Quarter: 2020Q1

REPORT INFORMATION
  Report Type: Report from Study
  Country: US (occurrence: US)
  Receive Date: 20190308
  Receipt Date: 20200110
  Transmission Date: 20200409
  Serious: No
  Sender: FDA-Public Use
  Company Number: US-SA-2019SA064319

PATIENT
  Age: 43 Year
  Sex: Female
  Weight: 70.75 kg

DRUGS (4)
  1. OMEPRAZOLE. [Concomitant]
     Active Substance: OMEPRAZOLE
  2. CARISOPRODOL. [Concomitant]
     Active Substance: CARISOPRODOL
  3. DUPILUMAB [Suspect]
     Active Substance: DUPILUMAB
     Indication: DERMATITIS ATOPIC
     Dosage: 300 MG, QOW
     Route: 058
     Dates: start: 20190218, end: 201911
  4. PREDNISONE. [Concomitant]
     Active Substance: PREDNISONE

REACTIONS (13)
  - Ocular hyperaemia [Unknown]
  - Chest pain [Not Recovered/Not Resolved]
  - Tooth extraction [Unknown]
  - Eye swelling [Unknown]
  - Product dose omission [Unknown]
  - Swelling of eyelid [Recovered/Resolved]
  - Eye pruritus [Unknown]
  - Lacrimation increased [Recovering/Resolving]
  - Eye contusion [Unknown]
  - Hypertension [Not Recovered/Not Resolved]
  - Fungal infection [Not Recovered/Not Resolved]
  - Arthralgia [Recovered/Resolved]
  - Dry eye [Recovering/Resolving]

NARRATIVE: CASE EVENT DATE: 201904
